FAERS Safety Report 5773713-7 (Version None)
Quarter: 2008Q2

REPORT INFORMATION
  Report Type: 
  Country: None (occurrence: None)
  Receive Date: 20080616
  Receipt Date: 20080610
  Transmission Date: 20081010
  Serious: Yes (Hospitalization)
  Sender: FDA-Public Use
  Company Number: JP-BRISTOL-MYERS SQUIBB COMPANY-14205223

PATIENT
  Age: 58 Year
  Sex: Male

DRUGS (9)
  1. REYATAZ [Suspect]
     Indication: HIV INFECTION
     Route: 048
     Dates: start: 20070718
  2. STOCRIN [Suspect]
     Indication: HIV INFECTION
     Dosage: LAST ADMINISTRATION ON 12-JUN-2007.
     Route: 048
     Dates: start: 20060606, end: 20070614
  3. NORVIR [Suspect]
     Indication: HIV INFECTION
     Route: 048
     Dates: start: 20070718
  4. TRUVADA [Suspect]
     Indication: HIV INFECTION
     Dosage: 1 DOSAGE FORM = 1 TABLET PER DAY, EVERY OTHER DAY.
     Route: 048
     Dates: start: 20070718
  5. FOSCAVIR [Suspect]
     Indication: CYTOMEGALOVIRUS VIRAEMIA
     Dosage: 11MAR07 TO 10JUL07 92DAYS; 26JUN07 TO 10JUL07 15DAYS 2.4MG/KG BID
     Route: 041
     Dates: start: 20070311, end: 20070710
  6. ZITHROMAX [Suspect]
     Indication: OPPORTUNISTIC INFECTION PROPHYLAXIS
     Dosage: 7FEB07 - 30MAY07 600MG/D; 12JUN07 - UNK 600MG/WK
     Route: 048
     Dates: start: 20070207
  7. EPZICOM [Suspect]
     Indication: HIV INFECTION
     Dosage: 1 DOSAGE FORM = 1 TABLET.LAST ADMINISTRATION ON 14-JUN-2007.
     Route: 048
     Dates: start: 20070606, end: 20070614
  8. ITRACONAZOLE [Concomitant]
     Dosage: 12JUN07 - 11JUL07, 12JUL - UNK
     Route: 048
     Dates: start: 20070612
  9. MICAFUNGIN SODIUM [Concomitant]
     Route: 042
     Dates: start: 20070330, end: 20070611

REACTIONS (6)
  - DRUG ERUPTION [None]
  - GLAUCOMA [None]
  - HYPOKALAEMIA [None]
  - HYPONATRAEMIA [None]
  - RENAL IMPAIRMENT [None]
  - UVEITIS [None]
